FAERS Safety Report 17548477 (Version 1)
Quarter: 2020Q1

REPORT INFORMATION
  Report Type: Spontaneous
  Country: CA (occurrence: CA)
  Receive Date: 20200317
  Receipt Date: 20200317
  Transmission Date: 20200409
  Serious: Yes (Other)
  Sender: FDA-Public Use
  Company Number: CA-TEVA-2020-CA-1203601

PATIENT
  Age: 67 Year
  Sex: Female

DRUGS (15)
  1. XALATAN [Suspect]
     Active Substance: LATANOPROST
     Dosage: 50 MICROGRAM DAILY;
  2. ORENCIA [Suspect]
     Active Substance: ABATACEPT
     Route: 065
  3. FUROSEMIDE. [Concomitant]
     Active Substance: FUROSEMIDE
     Dosage: 40 MILLIGRAM DAILY;
  4. VALSARTAN. [Concomitant]
     Active Substance: VALSARTAN
     Dosage: 320 MILLIGRAM DAILY;
  5. POTASSIUM CHLORIDE. [Concomitant]
     Active Substance: POTASSIUM CHLORIDE
     Dosage: 1500 MILLIGRAM DAILY;
  6. ERGOCALCIFEROL. [Concomitant]
     Active Substance: ERGOCALCIFEROL
  7. ESTROGEL [Concomitant]
     Active Substance: ESTRADIOL
     Dosage: 1.8 PERCENT DAILY;
  8. CIMZIA [Suspect]
     Active Substance: CERTOLIZUMAB PEGOL
     Indication: PRODUCT USED FOR UNKNOWN INDICATION
     Route: 065
  9. METHOTREXATE. [Suspect]
     Active Substance: METHOTREXATE
     Indication: RHEUMATOID ARTHRITIS
     Route: 065
  10. HYDROXYCHLOROQUINE SULFATE. [Suspect]
     Active Substance: HYDROXYCHLOROQUINE SULFATE
     Route: 065
  11. DORZOLAMIDE HYDROCHLORIDE AND TIMOLOL MALEATE [Concomitant]
     Active Substance: DORZOLAMIDE HYDROCHLORIDE\TIMOLOL MALEATE
  12. MORPHINE [Concomitant]
     Active Substance: MORPHINE
  13. ZINGIBER OFFICINALE [Concomitant]
     Active Substance: GINGER
  14. ENBREL [Suspect]
     Active Substance: ETANERCEPT
     Indication: RHEUMATOID ARTHRITIS
     Route: 065
  15. ACTEMRA [Suspect]
     Active Substance: TOCILIZUMAB
     Indication: PRODUCT USED FOR UNKNOWN INDICATION
     Route: 065

REACTIONS (8)
  - Colitis microscopic [Unknown]
  - Drug intolerance [Unknown]
  - Synovitis [Unknown]
  - Diverticulitis [Unknown]
  - C-reactive protein increased [Unknown]
  - Bronchitis [Unknown]
  - Drug ineffective [Unknown]
  - Glaucoma [Unknown]
